FAERS Safety Report 5838313-9 (Version None)
Quarter: 2008Q3

REPORT INFORMATION
  Report Type: 
  Country: None (occurrence: None)
  Receive Date: 20080808
  Receipt Date: 20080729
  Transmission Date: 20090109
  Serious: Yes (Hospitalization, Other)
  Sender: FDA-Public Use
  Company Number: US-AMGEN-US270394

PATIENT
  Sex: Female
  Weight: 109 kg

DRUGS (19)
  1. ENBREL [Suspect]
     Indication: RHEUMATOID ARTHRITIS
     Route: 058
     Dates: start: 20070831, end: 20080610
  2. INFLUENZA VACCINE [Concomitant]
     Route: 065
     Dates: start: 20071130, end: 20071130
  3. CALCIUM [Concomitant]
     Route: 048
     Dates: start: 20070831, end: 20080610
  4. ASCORBIC ACID [Concomitant]
     Route: 048
     Dates: start: 20070831, end: 20080610
  5. MULTI-VITAMINS [Concomitant]
     Route: 048
     Dates: start: 20070831, end: 20080610
  6. FOLIC ACID [Concomitant]
     Route: 048
     Dates: start: 20070831, end: 20080610
  7. PREDNISONE TAB [Concomitant]
     Route: 048
     Dates: start: 20071001, end: 20080610
  8. PREDNISONE TAB [Concomitant]
     Route: 048
     Dates: start: 20071017, end: 20071023
  9. PREDNISONE TAB [Concomitant]
     Route: 048
     Dates: start: 20071024, end: 20071030
  10. PREDNISONE TAB [Concomitant]
     Route: 048
     Dates: start: 20071031, end: 20071106
  11. PREDNISONE TAB [Concomitant]
     Route: 048
     Dates: start: 20071107, end: 20071113
  12. PREDNISONE TAB [Concomitant]
     Route: 048
     Dates: start: 20071114, end: 20071128
  13. PREDNISONE TAB [Concomitant]
     Route: 048
     Dates: start: 20071129, end: 20080219
  14. TYLENOL [Concomitant]
     Route: 048
     Dates: start: 20070831, end: 20080215
  15. MAALOX [Concomitant]
     Route: 048
     Dates: start: 20070831, end: 20080610
  16. TUMS [Concomitant]
     Route: 048
     Dates: start: 20070831, end: 20080610
  17. ALBUTEROL [Concomitant]
     Route: 055
     Dates: start: 20071215, end: 20080201
  18. PULMICORT-100 [Concomitant]
     Route: 055
     Dates: start: 20071215, end: 20080201
  19. CELEBREX [Concomitant]
     Route: 048
     Dates: start: 20070831, end: 20080315

REACTIONS (2)
  - BREECH PRESENTATION [None]
  - SUPRAVENTRICULAR TACHYCARDIA [None]
